FAERS Safety Report 8728467 (Version 2)
Quarter: 2012Q4

REPORT INFORMATION
  Report Type: 
  Country: US (occurrence: US)
  Receive Date: 20120817
  Receipt Date: 20121120
  Transmission Date: 20130627
  Serious: Yes (Hospitalization)
  Sender: FDA-Public Use
  Company Number: US-ELI_LILLY_AND_COMPANY-US201208002748

PATIENT
  Sex: Female

DRUGS (1)
  1. FORTEO [Suspect]
     Dosage: 20 u, qd
     Dates: start: 20120501

REACTIONS (5)
  - Renal failure [Unknown]
  - Dehydration [Unknown]
  - Muscle spasms [Unknown]
  - Nausea [Unknown]
  - Joint injury [Unknown]
